FAERS Safety Report 15122752 (Version 3)
Quarter: 2018Q4

REPORT INFORMATION
  Report Type: Report from Study
  Country: SE (occurrence: SE)
  Receive Date: 20180709
  Receipt Date: 20181110
  Transmission Date: 20190204
  Serious: Yes (Hospitalization, Other)
  Sender: FDA-Public Use
  Company Number: PHHY2018SE039920

PATIENT
  Age: 65 Year
  Sex: Female

DRUGS (19)
  1. ETHYLMORPHINE [Concomitant]
     Active Substance: ETHYLMORPHINE
     Indication: COUGH
     Dosage: 5 ML, TID
     Route: 048
     Dates: start: 20180125
  2. BETAMETHASON [Concomitant]
     Active Substance: BETAMETHASONE
     Dosage: 1 MG, QD
     Route: 048
     Dates: start: 20180228
  3. METOKLOPRAMID [Concomitant]
     Indication: NAUSEA
     Dosage: 10 MG, PRN
     Route: 048
     Dates: start: 20180228
  4. SITAGLIPTIN [Concomitant]
     Active Substance: SITAGLIPTIN
     Indication: DIABETES MELLITUS
     Dosage: 100 MG, QD
     Route: 048
     Dates: start: 20170308
  5. BETAMETHASON [Concomitant]
     Active Substance: BETAMETHASONE
     Indication: HEADACHE
     Dosage: 1.5 MG, BID
     Route: 048
     Dates: start: 20180212, end: 20180219
  6. LOPERAMID [Concomitant]
     Active Substance: LOPERAMIDE
     Indication: DIARRHOEA
     Dosage: 4 MG, PRN
     Route: 048
     Dates: start: 20180228
  7. PARACETAMOL [Concomitant]
     Active Substance: ACETAMINOPHEN
     Indication: PAIN IN EXTREMITY
  8. MORFIN [Concomitant]
     Active Substance: MORPHINE SULFATE
     Indication: PAIN IN EXTREMITY
  9. NATRIUMPICOSULFAT [Concomitant]
     Indication: CONSTIPATION
     Dosage: 10 DRP, PRN
     Route: 048
     Dates: start: 20180301
  10. INSULIN HUMAN [Concomitant]
     Active Substance: INSULIN HUMAN
     Indication: DIABETES MELLITUS
     Dosage: 100 IE/ML, PRN
     Route: 058
     Dates: start: 20170504
  11. SERTRALINE [Concomitant]
     Active Substance: SERTRALINE HYDROCHLORIDE
     Indication: DEPRESSION
     Dosage: 50 MG, QD
     Route: 048
     Dates: start: 20170914
  12. TIOTROPIUM [Concomitant]
     Active Substance: TIOTROPIUM
     Indication: COUGH
     Dosage: 18 UG, QD
     Route: 055
     Dates: start: 20170113
  13. PARACETAMOL [Concomitant]
     Active Substance: ACETAMINOPHEN
     Indication: MUSCULOSKELETAL PAIN
     Dosage: 500 MG, PRN
     Route: 048
     Dates: start: 20180227
  14. HYCAMTIN [Suspect]
     Active Substance: TOPOTECAN HYDROCHLORIDE
     Indication: SMALL CELL LUNG CANCER
     Dosage: 1.5 MG/M2, CYCLIC (DAYS 1 TO 5 OF EACH 21 DAY CYCLE)
     Route: 042
     Dates: start: 20180228, end: 20180304
  15. MORFIN [Concomitant]
     Active Substance: MORPHINE SULFATE
     Indication: MUSCULOSKELETAL PAIN
     Dosage: 10 MG, PRN
     Route: 048
     Dates: start: 20180227
  16. HYCAMTIN [Suspect]
     Active Substance: TOPOTECAN HYDROCHLORIDE
     Dosage: 1.5 MG/M2, CYCLIC (DAYS 1 TO 5 OF EACH 21 DAY CYCLE)
     Route: 042
     Dates: start: 20180319, end: 20180504
  17. BETAMETHASON [Concomitant]
     Active Substance: BETAMETHASONE
     Dosage: 1 MG, BID
     Route: 048
     Dates: start: 20180220, end: 20180227
  18. METFORMIN [Concomitant]
     Active Substance: METFORMIN HYDROCHLORIDE
     Indication: DIABETES MELLITUS
     Dosage: 500 MG, TID
     Route: 048
     Dates: start: 20151008
  19. VITAMIN D [Concomitant]
     Active Substance: CHOLECALCIFEROL
     Indication: VITAMIN SUPPLEMENTATION
     Dosage: 20 UG, QD
     Route: 048
     Dates: start: 20171101, end: 20180518

REACTIONS (11)
  - Neutrophil count decreased [Unknown]
  - Escherichia urinary tract infection [Recovered/Resolved]
  - Headache [Recovered/Resolved]
  - Myalgia [Unknown]
  - Pyrexia [Recovered/Resolved]
  - Immune system disorder [Unknown]
  - White blood cell count decreased [Unknown]
  - Fatigue [Unknown]
  - Lower respiratory tract infection [Unknown]
  - Febrile neutropenia [Recovered/Resolved]
  - Blood pressure decreased [Unknown]

NARRATIVE: CASE EVENT DATE: 20180514
